FAERS Safety Report 9038243 (Version 1)
Quarter: 2013Q1

REPORT INFORMATION
  Report Type: Spontaneous
  Country: US (occurrence: US)
  Receive Date: 20130129
  Receipt Date: 20130129
  Transmission Date: 20140127
  Serious: No
  Sender: FDA-Public Use
  Company Number: US-GLAXOSMITHKLINE-A0993956A

PATIENT
  Age: 64 Year
  Sex: Female

DRUGS (2)
  1. WELLBUTRIN [Suspect]
     Indication: DEPRESSION
     Dosage: 150MG PER DAY
     Route: 048
     Dates: start: 2004
  2. NICORETTE [Suspect]
     Indication: EX-TOBACCO USER
     Dosage: 4MG SEE DOSAGE TEXT
     Route: 002

REACTIONS (5)
  - Depression [Not Recovered/Not Resolved]
  - Lethargy [Not Recovered/Not Resolved]
  - Apathy [Not Recovered/Not Resolved]
  - Drug ineffective [Unknown]
  - Drug administration error [Unknown]
